FAERS Safety Report 11238815 (Version 3)
Quarter: 2015Q3

REPORT INFORMATION
  Report Type: Spontaneous
  Country: IT (occurrence: IT)
  Receive Date: 20150706
  Receipt Date: 20150723
  Transmission Date: 20151125
  Serious: Yes (Other)
  Sender: FDA-Public Use
  Company Number: IT-ROCHE-1602830

PATIENT
  Age: 71 Year
  Sex: Female
  Weight: 52 kg

DRUGS (9)
  1. CARDICOR [Concomitant]
     Active Substance: BISOPROLOL
     Indication: CARDIAC FAILURE
     Route: 048
  2. SEREUPIN [Concomitant]
     Active Substance: PAROXETINE HYDROCHLORIDE
     Dosage: 20 MG -28 TABLETS
     Route: 048
  3. TRIATEC (ITALY) [Concomitant]
     Active Substance: RAMIPRIL
     Indication: HYPERTENSION
     Route: 048
  4. LASIX [Concomitant]
     Active Substance: FUROSEMIDE
     Dosage: 25 MG TABLETS-30 TABLETS
     Route: 048
  5. NITROCOR [Concomitant]
     Active Substance: NITROGLYCERIN
     Indication: ANGINA PECTORIS
  6. XANAX [Concomitant]
     Active Substance: ALPRAZOLAM
  7. AVASTIN [Suspect]
     Active Substance: BEVACIZUMAB
     Indication: BREAST CANCER
     Dosage: 1 X 400 MG VIAL
     Route: 042
     Dates: start: 20150323
  8. PACLITAXEL. [Suspect]
     Active Substance: PACLITAXEL
     Indication: BREAST CANCER
     Dosage: 6 MG/ML -1 X 300 MG/50 ML GLASS VIAL
     Route: 042
     Dates: start: 20150323
  9. MICROSER [Concomitant]
     Active Substance: BETAHISTINE HYDROCHLORIDE

REACTIONS (8)
  - Neuropathy peripheral [Not Recovered/Not Resolved]
  - Peripheral swelling [Not Recovered/Not Resolved]
  - Pruritus generalised [Not Recovered/Not Resolved]
  - Neutropenia [Not Recovered/Not Resolved]
  - Rash generalised [Not Recovered/Not Resolved]
  - Nail discolouration [Not Recovered/Not Resolved]
  - Dysgeusia [Unknown]
  - Depression [Unknown]

NARRATIVE: CASE EVENT DATE: 20150424
